FAERS Safety Report 7919411-2 (Version None)
Quarter: 2011Q4

REPORT INFORMATION
  Report Type: 
  Country: None (occurrence: None)
  Receive Date: 20111115
  Receipt Date: 20111115
  Transmission Date: 20120403
  Serious: No
  Sender: FDA-Public Use
  Company Number: None

PATIENT
  Age: 61 Year
  Sex: Male
  Weight: 64.41 kg

DRUGS (2)
  1. IOHEXOL [Suspect]
     Dates: start: 20110912, end: 20110912
  2. IODIXANOL [Suspect]
     Indication: COMPUTERISED TOMOGRAM
     Dosage: 100 ML ONCE IV
     Route: 042
     Dates: start: 20110912, end: 20110912

REACTIONS (4)
  - RASH [None]
  - LIP SWELLING [None]
  - PRURITUS [None]
  - URTICARIA [None]
